FAERS Safety Report 25457297 (Version 1)
Quarter: 2025Q2

REPORT INFORMATION
  Report Type: Report from Study
  Country: US (occurrence: US)
  Receive Date: 20250619
  Receipt Date: 20250619
  Transmission Date: 20250717
  Serious: Yes (Death, Other)
  Sender: TAKEDA
  Company Number: US-TAKEDA-2025TUS054980

PATIENT
  Age: 59 Year
  Sex: Male

DRUGS (9)
  1. FRUQUINTINIB [Suspect]
     Active Substance: FRUQUINTINIB
     Indication: Colon cancer
     Dosage: 5 MILLIGRAM, QD
  2. FRUQUINTINIB [Suspect]
     Active Substance: FRUQUINTINIB
  3. ALBUTEROL SULFATE [Concomitant]
     Active Substance: ALBUTEROL SULFATE
  4. DILTIAZEM [Concomitant]
     Active Substance: DILTIAZEM
  5. FERROUS SULFATE [Concomitant]
     Active Substance: FERROUS SULFATE
  6. LISINOPRIL [Concomitant]
     Active Substance: LISINOPRIL
  7. ONDANSETRON [Concomitant]
     Active Substance: ONDANSETRON
  8. ASPIRIN [Concomitant]
     Active Substance: ASPIRIN
  9. VITAMIN C [Concomitant]
     Active Substance: ASCORBIC ACID

REACTIONS (1)
  - Death [Fatal]

NARRATIVE: CASE EVENT DATE: 20250613
